FAERS Safety Report 8559802-2 (Version None)
Quarter: 2012Q3

REPORT INFORMATION
  Report Type: 
  Country: None (occurrence: None)
  Receive Date: 20120802
  Receipt Date: 20120728
  Transmission Date: 20120928
  Serious: No
  Sender: FDA-Public Use
  Company Number: US-PFIZER INC-2012182985

PATIENT
  Sex: Female
  Weight: 90.703 kg

DRUGS (3)
  1. IBUPROFEN (ADVIL) [Suspect]
     Indication: PAIN
     Dosage: 200 MG, 1X/DAY
     Route: 048
     Dates: start: 20120727, end: 20120728
  2. LIPITOR [Concomitant]
     Dosage: UNK
  3. INSULIN [Concomitant]
     Indication: DIABETES MELLITUS
     Dosage: UNK

REACTIONS (5)
  - AURICULAR SWELLING [None]
  - PRURITUS [None]
  - SWELLING FACE [None]
  - LIP SWELLING [None]
  - MASS [None]
